FAERS Safety Report 6175235-0 (Version None)
Quarter: 2009Q2

REPORT INFORMATION
  Report Type: 
  Country: None (occurrence: None)
  Receive Date: 20090430
  Receipt Date: 20090129
  Transmission Date: 20091009
  Serious: No
  Sender: FDA-Public Use
  Company Number: US-ASTRAZENECA-2009UW02613

PATIENT
  Age: 65 Year
  Sex: Female
  Weight: 67.6 kg

DRUGS (4)
  1. NEXIUM [Suspect]
     Indication: GASTROOESOPHAGEAL REFLUX DISEASE
     Route: 048
  2. LOTREL [Concomitant]
     Indication: HYPERTENSION
     Route: 048
  3. LIBRAX [Concomitant]
     Indication: DYSPEPSIA
     Route: 048
  4. ULTRACET [Concomitant]
     Indication: PAIN
     Route: 048

REACTIONS (2)
  - BRONCHITIS [None]
  - HYPOAESTHESIA FACIAL [None]
